FAERS Safety Report 25544552 (Version 2)
Quarter: 2025Q3

REPORT INFORMATION
  Report Type: Spontaneous
  Country: US (occurrence: US)
  Receive Date: 20250711
  Receipt Date: 20250805
  Transmission Date: 20251020
  Serious: Yes (Death, Other)
  Sender: RIGEL PHARMACEUTICALS
  Company Number: US-RIGEL Pharmaceuticals, INC-20250700053

PATIENT
  Age: 36 Year
  Sex: Male

DRUGS (1)
  1. TAVALISSE [Suspect]
     Active Substance: FOSTAMATINIB
     Indication: Aplastic anaemia
     Dosage: 150 MG, BID
     Route: 048
     Dates: start: 20241114

REACTIONS (6)
  - Death [Fatal]
  - Platelet count [Unknown]
  - Malaise [Unknown]
  - Asthenia [Unknown]
  - Off label use [Unknown]
  - Drug ineffective for unapproved indication [Unknown]

NARRATIVE: CASE EVENT DATE: 20241114
